FAERS Safety Report 8199481-X (Version None)
Quarter: 2012Q1

REPORT INFORMATION
  Report Type: 
  Country: None (occurrence: None)
  Receive Date: 20120309
  Receipt Date: 20120307
  Transmission Date: 20120608
  Serious: Yes (Other)
  Sender: FDA-Public Use
  Company Number: US-SANTEN INC.-INC-12-000078

PATIENT
  Sex: Female
  Weight: 104.42 kg

DRUGS (7)
  1. SIROLIMUS [Suspect]
     Indication: UVEITIS
     Route: 031
     Dates: start: 20120229
  2. SPIRIVA [Concomitant]
     Indication: ASTHMA
  3. PROAIR HFA [Concomitant]
     Indication: ASTHMA
     Dates: start: 20090101
  4. AMBIEN [Concomitant]
     Dates: start: 20100101
  5. PHENTERMINE [Concomitant]
     Dates: start: 20120101
  6. RELAFEN [Concomitant]
     Dates: start: 20120211
  7. VICODIN [Concomitant]
     Dates: start: 20110101

REACTIONS (1)
  - INTRAOCULAR PRESSURE INCREASED [None]
